FAERS Safety Report 10231394 (Version 2)
Quarter: 2014Q2

REPORT INFORMATION
  Report Type: Spontaneous
  Country: JP (occurrence: JP)
  Receive Date: 20140611
  Receipt Date: 20140620
  Transmission Date: 20141212
  Serious: Yes (Other)
  Sender: FDA-Public Use
  Company Number: JP-PFIZER INC-2014157597

PATIENT
  Age: 45 Year
  Sex: Female

DRUGS (2)
  1. PROVERA [Suspect]
     Indication: PREMATURE MENOPAUSE
     Dosage: UNK
     Route: 048
  2. L^ESTROGEL [Concomitant]

REACTIONS (2)
  - Femur fracture [Not Recovered/Not Resolved]
  - Fall [Not Recovered/Not Resolved]
